FAERS Safety Report 12495486 (Version 5)
Quarter: 2016Q3

REPORT INFORMATION
  Report Type: Spontaneous
  Country: US (occurrence: US)
  Receive Date: 20160624
  Receipt Date: 20160901
  Transmission Date: 20161109
  Serious: No
  Sender: FDA-Public Use
  Company Number: US-PFIZER INC-2016311587

PATIENT
  Age: 62 Year
  Sex: Male

DRUGS (1)
  1. VIAGRA [Suspect]
     Active Substance: SILDENAFIL CITRATE
     Indication: ROUTINE HEALTH MAINTENANCE
     Dosage: 50 MG, UNK (50 MG X30)
     Dates: start: 201510

REACTIONS (2)
  - Drug ineffective [Recovered/Resolved]
  - Product size issue [Recovered/Resolved]
